FAERS Safety Report 10236332 (Version 1)
Quarter: 2014Q2

REPORT INFORMATION
  Report Type: Spontaneous
  Country: JP (occurrence: JP)
  Receive Date: 20140613
  Receipt Date: 20140613
  Transmission Date: 20141212
  Serious: Yes (Hospitalization, Other)
  Sender: FDA-Public Use
  Company Number: JP-ROXANE LABORATORIES, INC.-2014-RO-00893RO

PATIENT
  Age: 48 Year
  Sex: Female

DRUGS (6)
  1. LITHIUM CARBONATE [Suspect]
     Indication: SCHIZOAFFECTIVE DISORDER
     Dosage: 1200 MG
     Route: 065
  2. TELMISARTAN [Suspect]
     Indication: ESSENTIAL HYPERTENSION
     Dosage: 40 MG
     Route: 065
  3. SODIUM VALPROATE [Suspect]
     Indication: SCHIZOAFFECTIVE DISORDER
     Dosage: 400 MG
     Route: 065
  4. OLANZAPINE [Suspect]
     Indication: SCHIZOAFFECTIVE DISORDER
     Dosage: 20 MG
     Route: 065
  5. LEVOMEPROMAZINE [Suspect]
     Indication: SCHIZOAFFECTIVE DISORDER
     Dosage: 5 MG
     Route: 065
  6. CLONAZEPAM [Suspect]
     Indication: SCHIZOAFFECTIVE DISORDER
     Dosage: 2 MG
     Route: 065

REACTIONS (3)
  - Toxicity to various agents [Unknown]
  - Renal failure acute [Unknown]
  - Essential hypertension [Recovered/Resolved]
